FAERS Safety Report 8018344-3 (Version None)
Quarter: 2012Q1

REPORT INFORMATION
  Report Type: 
  Country: None (occurrence: None)
  Receive Date: 20120103
  Receipt Date: 20111222
  Transmission Date: 20120608
  Serious: Yes (Hospitalization)
  Sender: FDA-Public Use
  Company Number: KR-PFIZER INC-2010121220

PATIENT
  Age: 57 Year
  Sex: Male
  Weight: 69 kg

DRUGS (3)
  1. ACETAMINOPHEN [Concomitant]
     Indication: PYREXIA
     Dosage: 650 MG, AS NEEDED
     Route: 048
     Dates: start: 20100824, end: 20100921
  2. CRIZOTINIB [Suspect]
     Indication: NON-SMALL CELL LUNG CANCER METASTATIC
     Dosage: 250 MG, SINGLE DOSE, DAY-7
     Route: 048
     Dates: start: 20100106, end: 20100106
  3. CRIZOTINIB [Suspect]
     Dosage: 250 MG, 2X/DAY
     Route: 048
     Dates: start: 20100113, end: 20100920

REACTIONS (1)
  - RENAL ABSCESS [None]
